FAERS Safety Report 5849765-2 (Version None)
Quarter: 2008Q3

REPORT INFORMATION
  Report Type: 
  Country: None (occurrence: None)
  Receive Date: 20080818
  Receipt Date: 20080818
  Transmission Date: 20090109
  Serious: Yes (Hospitalization)
  Sender: FDA-Public Use
  Company Number: None

PATIENT
  Sex: Female
  Weight: 84.5 kg

DRUGS (5)
  1. CISPLATIN [Suspect]
     Dosage: 98 MG
  2. DOXORUBICIN HYDROCHLORIDE [Suspect]
     Dosage: 88 MG
  3. TAXOL [Suspect]
     Dosage: 312 MG
  4. IMODIUM [Concomitant]
  5. ACETAMINOPHEN AND OXYCODONE HCL [Concomitant]

REACTIONS (3)
  - DIARRHOEA [None]
  - GASTROINTESTINAL NECROSIS [None]
  - SEPTIC SHOCK [None]
